FAERS Safety Report 12970180 (Version 3)
Quarter: 2017Q3

REPORT INFORMATION
  Report Type: Spontaneous
  Country: JP (occurrence: JP)
  Receive Date: 20161123
  Receipt Date: 20170718
  Transmission Date: 20171127
  Serious: Yes (Other)
  Sender: FDA-Public Use
  Company Number: JP-JNJFOC-20161122850

PATIENT
  Age: 11 Year
  Sex: Female
  Weight: 11 kg

DRUGS (15)
  1. TOPINA [Suspect]
     Active Substance: TOPIRAMATE
     Indication: EPILEPSY
     Route: 048
     Dates: start: 20120720, end: 20120830
  2. EPIRENAT [Concomitant]
     Active Substance: VALPROATE SODIUM
     Indication: EPILEPSY
     Route: 048
     Dates: start: 20111202
  3. TOPINA [Suspect]
     Active Substance: TOPIRAMATE
     Indication: EPILEPSY
     Dosage: 30 MG AND 40 MG
     Route: 048
     Dates: start: 20140317, end: 20150723
  4. TOPINA [Suspect]
     Active Substance: TOPIRAMATE
     Indication: EPILEPSY
     Route: 048
     Dates: start: 20150826, end: 20150907
  5. TOPINA [Suspect]
     Active Substance: TOPIRAMATE
     Indication: EPILEPSY
     Route: 048
     Dates: start: 20120330, end: 20120621
  6. MEILAX [Concomitant]
     Active Substance: ETHYL LOFLAZEPATE
     Indication: EPILEPSY
     Route: 048
     Dates: start: 20160201
  7. EPIRENAT [Concomitant]
     Active Substance: VALPROATE SODIUM
     Indication: EPILEPSY
     Route: 048
  8. EPIRENAT [Concomitant]
     Active Substance: VALPROATE SODIUM
     Indication: EPILEPSY
     Route: 048
  9. TOPINA [Suspect]
     Active Substance: TOPIRAMATE
     Indication: EPILEPSY
     Route: 048
     Dates: start: 20150724, end: 20150811
  10. TOPINA [Suspect]
     Active Substance: TOPIRAMATE
     Indication: EPILEPSY
     Route: 048
     Dates: start: 20150812, end: 20150825
  11. TOPINA [Suspect]
     Active Substance: TOPIRAMATE
     Indication: EPILEPSY
     Route: 048
     Dates: start: 20120622, end: 20120719
  12. MEILAX [Concomitant]
     Active Substance: ETHYL LOFLAZEPATE
     Indication: EPILEPSY
     Route: 048
     Dates: start: 20150724, end: 20160131
  13. TOPINA [Suspect]
     Active Substance: TOPIRAMATE
     Indication: EPILEPSY
     Dosage: 30 MG AND 20 MG
     Route: 048
     Dates: start: 20140120, end: 20140316
  14. EPIRENAT [Concomitant]
     Active Substance: VALPROATE SODIUM
     Indication: EPILEPSY
     Route: 048
  15. TOPINA [Suspect]
     Active Substance: TOPIRAMATE
     Indication: EPILEPSY
     Route: 048
     Dates: start: 20120831, end: 20140119

REACTIONS (3)
  - Dehydration [Recovered/Resolved]
  - Nephrocalcinosis [Recovered/Resolved]
  - Hypercalciuria [Recovered/Resolved]

NARRATIVE: CASE EVENT DATE: 20150724
